FAERS Safety Report 4825926-6 (Version None)
Quarter: 2005Q4

REPORT INFORMATION
  Report Type: 
  Country: None (occurrence: None)
  Receive Date: 20051111
  Receipt Date: 20050905
  Transmission Date: 20060501
  Serious: Yes (Hospitalization)
  Sender: FDA-Public Use
  Company Number: IT-GILEAD-2005-0008666

PATIENT
  Sex: Female

DRUGS (6)
  1. EMTRIVA [Suspect]
     Indication: HIV INFECTION
     Route: 048
     Dates: start: 20050623, end: 20050722
  2. VIREAD [Suspect]
     Indication: HIV INFECTION
     Route: 048
     Dates: start: 20050623, end: 20050722
  3. REYATAZ [Suspect]
     Indication: HIV INFECTION
     Route: 048
     Dates: start: 20050623, end: 20050722
  4. REYATAZ [Suspect]
     Route: 048
     Dates: start: 20050901
  5. NORVIR 100 [Suspect]
     Indication: HIV INFECTION
     Route: 048
     Dates: start: 20050623, end: 20050722
  6. NORVIR 100 [Suspect]
     Route: 048
     Dates: start: 20050901

REACTIONS (1)
  - CUSHING'S SYNDROME [None]
